FAERS Safety Report 8791715 (Version 3)
Quarter: 2012Q4

REPORT INFORMATION
  Report Type: 
  Country: JP (occurrence: JP)
  Receive Date: 20120918
  Receipt Date: 20121004
  Transmission Date: 20130627
  Serious: Yes (Hospitalization, Other)
  Sender: FDA-Public Use
  Company Number: JP-JNJFOC-20120907028

PATIENT
  Age: 15 Year
  Sex: Male
  Weight: 74.5 kg

DRUGS (18)
  1. DOXORUBICIN HYDROCHLORIDE (DOXIL) [Suspect]
     Indication: ACUTE LYMPHOCYTIC LEUKAEMIA
     Route: 042
  2. DOXORUBICIN [Suspect]
     Indication: ACUTE LYMPHOCYTIC LEUKAEMIA
     Route: 042
  3. AMPHOTERICIN B [Suspect]
     Indication: FUNGAL INFECTION
     Route: 065
  4. VORICONAZOLE [Suspect]
     Indication: PNEUMONIA
     Dosage: on the 45th day of the chemotherapy
     Route: 065
  5. VORICONAZOLE [Suspect]
     Indication: FUNGAL INFECTION
     Dosage: on the 45th day of the chemotherapy
     Route: 065
  6. MEXILETINE [Suspect]
     Indication: VENTRICULAR FIBRILLATION
     Route: 065
  7. MEXILETINE [Suspect]
     Indication: VENTRICULAR TACHYCARDIA
     Route: 065
  8. PROPRANOLOL [Suspect]
     Indication: VENTRICULAR FIBRILLATION
     Route: 065
  9. PROPRANOLOL [Suspect]
     Indication: VENTRICULAR TACHYCARDIA
     Route: 065
  10. NIFEKALANT [Suspect]
     Indication: VENTRICULAR FIBRILLATION
     Route: 065
  11. NIFEKALANT [Suspect]
     Indication: VENTRICULAR TACHYCARDIA
     Route: 065
  12. LIDOCAINE [Suspect]
     Indication: VENTRICULAR FIBRILLATION
     Route: 065
  13. LIDOCAINE [Suspect]
     Indication: VENTRICULAR TACHYCARDIA
     Route: 065
  14. MICAFUNGIN [Suspect]
     Indication: PNEUMONIA
     Route: 065
  15. MICAFUNGIN [Suspect]
     Indication: FUNGAL INFECTION
     Route: 065
  16. MEXILETINE [Suspect]
     Indication: PRODUCT USED FOR UNKNOWN INDICATION
     Route: 042
  17. AMIODARONE [Suspect]
     Indication: TORSADE DE POINTES
     Route: 042
  18. AMIODARONE [Suspect]
     Indication: TORSADE DE POINTES
     Route: 042

REACTIONS (6)
  - Bone marrow failure [Unknown]
  - Torsade de pointes [Recovered/Resolved]
  - Ventricular tachycardia [Recovered/Resolved]
  - Fungal infection [Not Recovered/Not Resolved]
  - Ventricular fibrillation [Unknown]
  - Off label use [Unknown]
